FAERS Safety Report 8435104-X (Version None)
Quarter: 2012Q2

REPORT INFORMATION
  Report Type: 
  Country: None (occurrence: None)
  Receive Date: 20120614
  Receipt Date: 20120607
  Transmission Date: 20120825
  Serious: Yes (Disabling, Other)
  Sender: FDA-Public Use
  Company Number: PHHY2012AU044427

PATIENT
  Sex: Female

DRUGS (15)
  1. OSTEOVIT [Concomitant]
     Dosage: 1 DF AT MORNING
  2. LEXAPRO [Concomitant]
     Dosage: 20 MG, MORNING
  3. FLUTICASONE PROPIONATE/SALMETEROL [Concomitant]
     Dosage: 2 PUFFS BI-DAILY
  4. BENZTROPINE MESYLATE [Concomitant]
     Dosage: 0.25 MG BI DAILY
  5. CEPHALEXIN [Concomitant]
     Dosage: 500 MG 4 TIMES A DAY
     Dates: start: 20120319
  6. FAT BLASTER [Concomitant]
     Dosage: 2 DF, TID
  7. CLOZARIL [Suspect]
     Dosage: 350 MG, AT NIGHT
     Dates: start: 20120607
  8. COLOXYL WITH SENNA [Concomitant]
     Dosage: 2 DF,BIDAILY
  9. DOXYCYCLINE [Concomitant]
     Dosage: 100 MG BI DAILY
     Dates: start: 20120319
  10. PREDNISOLONE [Concomitant]
     Dosage: 5 MG,
     Dates: start: 20120319
  11. CLOZARIL [Suspect]
     Dosage: 350 MG
     Dates: start: 20050609
  12. VALPROATE SODIUM [Concomitant]
     Dosage: 2400 MG, DAILY
  13. ABILIFY [Concomitant]
     Dosage: 20 MG, AT MORNING
  14. FUROSEMIDE [Concomitant]
     Dosage: 40 MG BI DAILY
  15. VENTOLIN [Concomitant]
     Dosage: UNK UKN, UNK

REACTIONS (4)
  - URINARY TRACT INFECTION [None]
  - OXYGEN SATURATION DECREASED [None]
  - HYPOTENSION [None]
  - GENERAL PHYSICAL CONDITION ABNORMAL [None]
